FAERS Safety Report 10220646 (Version 1)
Quarter: 2014Q2

REPORT INFORMATION
  Report Type: Spontaneous
  Country: LB (occurrence: None)
  Receive Date: 20140604
  Receipt Date: 20140604
  Transmission Date: 20141212
  Serious: Yes (Hospitalization)
  Sender: FDA-Public Use
  Company Number: 2014P1004586

PATIENT
  Age: 29 Year
  Sex: Male

DRUGS (2)
  1. METHIMAZOLE [Suspect]
     Indication: BASEDOW^S DISEASE
  2. PROPRANOLOL [Concomitant]

REACTIONS (5)
  - Fasciitis [None]
  - Myositis [None]
  - Eosinophilia [None]
  - Hepatocellular injury [None]
  - Cholestasis [None]
